FAERS Safety Report 25920201 (Version 1)
Quarter: 2025Q4

REPORT INFORMATION
  Report Type: Spontaneous
  Country: US (occurrence: None)
  Receive Date: 20251014
  Receipt Date: 20251014
  Transmission Date: 20260118
  Serious: Yes (Hospitalization)
  Sender: FDA-CTU
  Company Number: None

PATIENT
  Sex: Female

DRUGS (7)
  1. ORENCIA [Suspect]
     Active Substance: ABATACEPT
     Indication: Rheumatoid arthritis
     Dosage: INJECT 125 MG UNDER THE SKIN (SUBCUTANEOUS INJECTION) EVERY WEEK??
     Route: 058
     Dates: start: 20231129
  2. OTEZLA [Suspect]
     Active Substance: APREMILAST
  3. D3-50 CAP 50000UNT [Concomitant]
  4. LOSARTAN POT TAB 25MG [Concomitant]
  5. METOPROL TAR TAB 25MG [Concomitant]
  6. OMEPRAZOLE [Concomitant]
     Active Substance: OMEPRAZOLE
  7. PRAVASTATIN TAB 20MG [Concomitant]

REACTIONS (6)
  - Urinary tract infection [None]
  - Dehydration [None]
  - Blood potassium decreased [None]
  - Drug hypersensitivity [None]
  - Escherichia infection [None]
  - Therapy interrupted [None]
